FAERS Safety Report 12491471 (Version 1)
Quarter: 2016Q2

REPORT INFORMATION
  Report Type: Spontaneous
  Country: US (occurrence: None)
  Receive Date: 20160622
  Receipt Date: 20160622
  Transmission Date: 20160815
  Serious: Yes (Life-Threatening, Hospitalization, Other)
  Sender: FDA-Public Use
  Company Number: None

PATIENT
  Age: 43 Year
  Sex: Female
  Weight: 57.15 kg

DRUGS (1)
  1. TRANEXAMIC ACID. [Suspect]
     Active Substance: TRANEXAMIC ACID
     Indication: MENORRHAGIA
     Dosage: 2 A DAY AS NEEDED
     Route: 048
     Dates: start: 20160520, end: 20160524

REACTIONS (3)
  - Carotid artery aneurysm [None]
  - Carotid artery thrombosis [None]
  - Ischaemic stroke [None]

NARRATIVE: CASE EVENT DATE: 20160529
